FAERS Safety Report 4562262-X (Version None)
Quarter: 2005Q1

REPORT INFORMATION
  Report Type: 
  Country: None (occurrence: None)
  Receive Date: 20050121
  Receipt Date: 20041113
  Transmission Date: 20050727
  Serious: Yes (Hospitalization)
  Sender: FDA-Public Use
  Company Number: 2004095770

PATIENT
  Age: 68 Year
  Sex: Male
  Weight: 68.9467 kg

DRUGS (5)
  1. CELEBREX [Suspect]
     Indication: ARTHRITIS
     Dosage: 200 MG (200 MG, 1 IN 1 D), ORAL
     Route: 048
     Dates: start: 20020101
  2. ATORVASTATIN (ATORVASTATIN) [Concomitant]
  3. FENOFIBRATE [Concomitant]
  4. VENLAFAXINE HCL [Concomitant]
  5. CENTRUM SILVER (ASCORBIC ACID, CALCIUM, MINERALS NOS, RETINOL, TOCOPHE [Concomitant]

REACTIONS (4)
  - ASTHENIA [None]
  - DEFAECATION URGENCY [None]
  - DIZZINESS [None]
  - ULCER HAEMORRHAGE [None]
